FAERS Safety Report 11719210 (Version 1)
Quarter: 2015Q4

REPORT INFORMATION
  Report Type: Spontaneous
  Country: US (occurrence: None)
  Receive Date: 20151109
  Receipt Date: 20151109
  Transmission Date: 20160304
  Serious: Yes (Hospitalization)
  Sender: FDA-Public Use
  Company Number: None

PATIENT
  Age: 82 Year
  Sex: Male

DRUGS (2)
  1. RIVAROXABAN [Suspect]
     Active Substance: RIVAROXABAN
     Indication: ATRIAL FIBRILLATION
     Route: 048
     Dates: start: 20150817, end: 20150917
  2. RIVAROXABAN [Suspect]
     Active Substance: RIVAROXABAN
     Route: 048
     Dates: start: 20150818, end: 20150919

REACTIONS (6)
  - Rash [None]
  - Confusional state [None]
  - Excoriation [None]
  - Urinary retention [None]
  - Pruritus [None]
  - Pruritus generalised [None]

NARRATIVE: CASE EVENT DATE: 20150827
